FAERS Safety Report 7554179-3 (Version None)
Quarter: 2011Q2

REPORT INFORMATION
  Report Type: 
  Country: None (occurrence: None)
  Receive Date: 20110617
  Receipt Date: 20110607
  Transmission Date: 20111010
  Serious: Yes (Other)
  Sender: FDA-Public Use
  Company Number: PHHY2011PL50140

PATIENT
  Age: 60 Year
  Sex: Male

DRUGS (11)
  1. TACROLIMUS [Suspect]
     Indication: IMMUNOSUPPRESSION
     Dosage: 0.5 MG, QD
  2. MYCOPHENOLATE MEFETIL [Suspect]
     Indication: IMMUNOSUPPRESSION
     Dosage: 250 MG, QD
  3. FUROSEMIDE [Concomitant]
     Dosage: 40 MG, UNK
  4. PREDNISONE [Suspect]
     Indication: IMMUNOSUPPRESSION
     Dosage: 5 MG, QD
  5. BISOPROLOL FUMARATE [Concomitant]
     Dosage: 5 MG, UNK
  6. ALLOPURINOL [Concomitant]
     Dosage: 100 MG, UNK
  7. SHORT ACTIONG INSULIN HUMAN [Concomitant]
     Dosage: 10 U AT MID DAY
  8. DOXAZOSIN MESYLATE [Concomitant]
     Dosage: 4 MG, UNK
  9. PREMIXED INSULIN [Concomitant]
     Dosage: 32 U(16 U IN THE MORNING AND 16 U IN THE EVENING)
  10. RANITIDINE [Concomitant]
     Dosage: 150 MG, UNK
  11. DILTIAZEM [Concomitant]
     Dosage: 90 MG, UNK

REACTIONS (5)
  - BOWEN'S DISEASE [None]
  - ULCER [None]
  - BASAL CELL CARCINOMA [None]
  - SKIN LESION [None]
  - NEOPLASM SKIN [None]
